FAERS Safety Report 13019147 (Version 1)
Quarter: 2016Q4

REPORT INFORMATION
  Report Type: Spontaneous
  Country: US (occurrence: US)
  Receive Date: 20161212
  Receipt Date: 20161212
  Transmission Date: 20170207
  Serious: No
  Sender: FDA-Public Use
  Company Number: US-ROCHE-1809202

PATIENT
  Sex: Female

DRUGS (26)
  1. VALIUM [Suspect]
     Active Substance: DIAZEPAM
     Indication: PRODUCT USED FOR UNKNOWN INDICATION
     Route: 065
  2. COMBIVENT [Concomitant]
     Active Substance: ALBUTEROL SULFATE\IPRATROPIUM BROMIDE
     Dosage: 20/100 MCG PUFFS EVERY 4 HRS; PRN
     Route: 065
  3. VICTOZA [Concomitant]
     Active Substance: LIRAGLUTIDE
     Dosage: QHS
     Route: 058
  4. VITAMIN C [Concomitant]
     Active Substance: ASCORBIC ACID
     Route: 048
  5. ATENOLOL. [Concomitant]
     Active Substance: ATENOLOL
     Route: 048
  6. PREMARIN [Concomitant]
     Active Substance: ESTROGENS, CONJUGATED
     Route: 065
  7. CYMBALTA [Concomitant]
     Active Substance: DULOXETINE HYDROCHLORIDE
     Route: 048
  8. PREVACID [Concomitant]
     Active Substance: LANSOPRAZOLE
     Dosage: QHS
     Route: 048
  9. CYANOCOBALAMIN. [Concomitant]
     Active Substance: CYANOCOBALAMIN
     Route: 030
  10. AMBIEN [Concomitant]
     Active Substance: ZOLPIDEM TARTRATE
     Dosage: OHS PRN
     Route: 048
  11. ZOVIRAX [Concomitant]
     Active Substance: ACYCLOVIR
     Dosage: AFFECTED AREA AS PRN
     Route: 065
  12. ADVAIR HFA [Concomitant]
     Active Substance: FLUTICASONE PROPIONATE\SALMETEROL XINAFOATE
     Dosage: 250/50 MCG, 1 PUFF EVERY 12 HRS; PRN
     Route: 065
  13. ATROVENT [Concomitant]
     Active Substance: IPRATROPIUM BROMIDE
     Dosage: NEBULIZER; PRN
     Route: 065
  14. TRICOR [Concomitant]
     Active Substance: FENOFIBRATE
     Route: 048
  15. KLOR-CON [Concomitant]
     Active Substance: POTASSIUM CHLORIDE
     Route: 048
  16. VITAMIN D3 [Concomitant]
     Active Substance: CHOLECALCIFEROL
     Route: 048
  17. HYDROCHLOROTHIAZIDE. [Concomitant]
     Active Substance: HYDROCHLOROTHIAZIDE
     Route: 048
  18. LYRICA [Concomitant]
     Active Substance: PREGABALIN
     Dosage: 90 DAYS SUPPLY OF 180 CAPSULES
     Route: 048
  19. MYCOLOG [Concomitant]
     Active Substance: GRAMICIDIN\NEOMYCIN SULFATE\NYSTATIN\TRIAMCINOLONE ACETONIDE
     Dosage: AFFECTED AREA AS PRN
     Route: 065
  20. ASPIRIN. [Concomitant]
     Active Substance: ASPIRIN
     Route: 048
  21. LANTUS [Concomitant]
     Active Substance: INSULIN GLARGINE
     Dosage: UPTO 80 UNITS
     Route: 058
  22. NORMAL SALINE [Concomitant]
     Active Substance: SODIUM CHLORIDE
     Dosage: (3 ML DEV VIALS); PRN
     Route: 065
  23. ALBUTEROL. [Concomitant]
     Active Substance: ALBUTEROL
     Dosage: PRN
     Route: 065
  24. LOSARTAN. [Concomitant]
     Active Substance: LOSARTAN
     Route: 048
  25. METFORMIN [Concomitant]
     Active Substance: METFORMIN HYDROCHLORIDE
     Route: 048
  26. NOVOLOG [Concomitant]
     Active Substance: INSULIN ASPART
     Dosage: 30-40 UNITS SQ AC/MEALS PRN
     Route: 065

REACTIONS (1)
  - Hypersensitivity [Unknown]
